FAERS Safety Report 19297723 (Version 3)
Quarter: 2021Q3

REPORT INFORMATION
  Report Type: Report from Study
  Country: None (occurrence: GB)
  Receive Date: 20210525
  Receipt Date: 20210819
  Transmission Date: 20211014
  Serious: Yes (Hospitalization, Other)
  Sender: FDA-Public Use
  Company Number: GB-ABBVIE-21K-167-3914452-00

PATIENT
  Age: 62 Year
  Sex: Female
  Weight: 73.5 kg

DRUGS (3)
  1. COSENTYX [Suspect]
     Active Substance: SECUKINUMAB
     Dosage: 300 MG, QMO
     Route: 058
     Dates: start: 2015
  2. COSENTYX [Suspect]
     Active Substance: SECUKINUMAB
     Indication: PSORIASIS
     Dosage: 300 MG, QMO
     Route: 058
  3. HUMIRA [Suspect]
     Active Substance: ADALIMUMAB
     Indication: PRODUCT USED FOR UNKNOWN INDICATION
     Route: 058
     Dates: start: 202104

REACTIONS (8)
  - Liver disorder [Not Recovered/Not Resolved]
  - Haemorrhage [Not Recovered/Not Resolved]
  - Defaecation urgency [Unknown]
  - Colitis ulcerative [Unknown]
  - Malaise [Not Recovered/Not Resolved]
  - Crohn^s disease [Not Recovered/Not Resolved]
  - Lower gastrointestinal haemorrhage [Unknown]
  - Anal incontinence [Unknown]

NARRATIVE: CASE EVENT DATE: 2021
